FAERS Safety Report 22660762 (Version 1)
Quarter: 2023Q2

REPORT INFORMATION
  Report Type: Spontaneous
  Country: US (occurrence: None)
  Receive Date: 20230630
  Receipt Date: 20230630
  Transmission Date: 20230721
  Serious: No
  Sender: FDA-Public Use
  Company Number: None

PATIENT
  Sex: 0

DRUGS (1)
  1. VENLAFAXINE [Suspect]
     Active Substance: VENLAFAXINE HYDROCHLORIDE

REACTIONS (7)
  - Drug ineffective [None]
  - Depression [None]
  - Panic attack [None]
  - Fear [None]
  - Anger [None]
  - Crying [None]
  - Suicidal ideation [None]
